FAERS Safety Report 15007111 (Version 1)
Quarter: 2018Q2

REPORT INFORMATION
  Report Type: Spontaneous
  Country: DE (occurrence: DE)
  Receive Date: 20180613
  Receipt Date: 20180613
  Transmission Date: 20180711
  Serious: Yes (Other)
  Sender: FDA-Public Use
  Company Number: DE-TEVA-2018-DE-905866

PATIENT
  Age: 66 Year
  Sex: Female
  Weight: 68 kg

DRUGS (1)
  1. FEM7 CONTI TRANSDERMALES PFLASTER (ESTRADIOL/LEVONORGESTREL) [Suspect]
     Active Substance: ESTRADIOL\LEVONORGESTREL
     Indication: SLEEP DISORDER
     Route: 062
     Dates: start: 20171212, end: 20171225

REACTIONS (3)
  - Peripheral swelling [Recovering/Resolving]
  - Neuropathy peripheral [Recovering/Resolving]
  - Pain in extremity [Recovering/Resolving]

NARRATIVE: CASE EVENT DATE: 20171223
